FAERS Safety Report 14537795 (Version 1)
Quarter: 2018Q1

REPORT INFORMATION
  Report Type: Spontaneous
  Country: US (occurrence: US)
  Receive Date: 20180215
  Receipt Date: 20180215
  Transmission Date: 20180509
  Serious: No
  Sender: FDA-Public Use
  Company Number: US-ENDO PHARMACEUTICALS INC-2017-005927

PATIENT
  Sex: Male
  Weight: 113.4 kg

DRUGS (26)
  1. TRIAMCINOLONE ACETONIDE CREAM [Concomitant]
     Active Substance: TRIAMCINOLONE ACETONIDE
     Indication: PSORIASIS
  2. METOPROLOL TARTRATE. [Concomitant]
     Active Substance: METOPROLOL TARTRATE
     Indication: VENTRICULAR TACHYCARDIA
  3. GABAPENTIN. [Suspect]
     Active Substance: GABAPENTIN
     Indication: CARPAL TUNNEL SYNDROME
     Dosage: 300 MG, QHS
     Route: 065
  4. AMLODIPINE BESYLATE TABLETS 5MG [Concomitant]
     Active Substance: AMLODIPINE BESYLATE
     Indication: HYPERTENSION
  5. ACIDOPHILUS [Concomitant]
     Active Substance: LACTOBACILLUS ACIDOPHILUS
     Indication: CONSTIPATION
  6. IBUPROFEN TABLETS [Concomitant]
     Active Substance: IBUPROFEN
     Indication: BACK PAIN
  7. FLONASE [Concomitant]
     Active Substance: FLUTICASONE PROPIONATE
     Indication: HYPERSENSITIVITY
  8. LIDODERM [Concomitant]
     Active Substance: LIDOCAINE
     Indication: MUSCULOSKELETAL PAIN
  9. ASPIRIN EC [Concomitant]
     Active Substance: ASPIRIN
     Indication: CARDIAC DISORDER
  10. LISINOPRIL AND HYDROCHLOROTHIAZIDE [Concomitant]
     Active Substance: HYDROCHLOROTHIAZIDE\LISINOPRIL
     Indication: OEDEMA
  11. HYDROCODONE BITARTRATE AND ACETAMINOPHEN [Concomitant]
     Active Substance: ACETAMINOPHEN\HYDROCODONE BITARTRATE
     Indication: BACK PAIN
  12. VITAMIN B COMPLEX [Concomitant]
     Active Substance: CYANOCOBALAMIN\DEXPANTHENOL\NIACINAMIDE\PYRIDOXINE HYDROCHLORIDE\RIBOFLAVIN 5^-PHOSPHATE SODIUM\THIAMINE HYDROCHLORIDE\VITAMIN B COMPLEX
     Indication: SUPPLEMENTATION THERAPY
  13. PSEUDOEPHEDRINE [Concomitant]
     Active Substance: PSEUDOEPHEDRINE
     Indication: PRODUCT USED FOR UNKNOWN INDICATION
  14. ZINC. [Concomitant]
     Active Substance: ZINC
     Indication: PSORIASIS
  15. TIZANIDINE. [Suspect]
     Active Substance: TIZANIDINE
     Indication: MUSCLE RELAXANT THERAPY
     Dosage: 4 MG, QHS
     Route: 065
  16. LISINOPRIL AND HYDROCHLOROTHIAZIDE [Concomitant]
     Active Substance: HYDROCHLOROTHIAZIDE\LISINOPRIL
     Indication: HYPERTENSION
  17. OMEPRAZOLE MAGNESIUM. [Concomitant]
     Active Substance: OMEPRAZOLE MAGNESIUM
     Indication: BARRETT^S OESOPHAGUS
  18. NIACIN. [Concomitant]
     Active Substance: NIACIN
     Indication: PRODUCT USED FOR UNKNOWN INDICATION
  19. CENTRUM                            /06011801/ [Concomitant]
     Indication: PRODUCT USED FOR UNKNOWN INDICATION
  20. LIDODERM [Concomitant]
     Active Substance: LIDOCAINE
     Indication: BACK PAIN
  21. HUMIRA [Concomitant]
     Active Substance: ADALIMUMAB
     Indication: PSORIASIS
  22. OSTEO BI-FLEX                      /07995901/ [Concomitant]
     Indication: PRODUCT USED FOR UNKNOWN INDICATION
  23. PREDNISONE TABLETS [Concomitant]
     Active Substance: PREDNISONE
     Indication: INTERVERTEBRAL DISC PROTRUSION
  24. KLOR-CON [Concomitant]
     Active Substance: POTASSIUM CHLORIDE
     Indication: MINERAL SUPPLEMENTATION
  25. CLOBETASOL [Concomitant]
     Active Substance: CLOBETASOL
     Indication: PSORIASIS
  26. BENADRYL [Concomitant]
     Active Substance: DIPHENHYDRAMINE HYDROCHLORIDE
     Indication: PSORIASIS

REACTIONS (2)
  - Drug effect incomplete [Unknown]
  - Somnolence [Unknown]
